FAERS Safety Report 21100378 (Version 1)
Quarter: 2022Q3

REPORT INFORMATION
  Report Type: Spontaneous
  Country: ES (occurrence: ES)
  Receive Date: 20220719
  Receipt Date: 20220719
  Transmission Date: 20221026
  Serious: Yes (Life-Threatening, Hospitalization, Other)
  Sender: FDA-Public Use
  Company Number: ES-Accord-269629

PATIENT
  Age: 58 Year
  Sex: Female

DRUGS (1)
  1. TEMOZOLOMIDE [Suspect]
     Active Substance: TEMOZOLOMIDE
     Indication: Glioblastoma

REACTIONS (4)
  - Febrile neutropenia [Recovered/Resolved]
  - Myelosuppression [Recovered/Resolved]
  - Gastritis bacterial [Recovering/Resolving]
  - Sepsis [Unknown]
